FAERS Safety Report 11167922 (Version 6)
Quarter: 2016Q2

REPORT INFORMATION
  Report Type: Report from Study
  Country: US (occurrence: US)
  Receive Date: 20150605
  Receipt Date: 20160421
  Transmission Date: 20160815
  Serious: Yes (Other)
  Sender: FDA-Public Use
  Company Number: US-SA-2015SA059857

PATIENT
  Age: 32 Year
  Sex: Male

DRUGS (3)
  1. CELEXA [Concomitant]
     Active Substance: CITALOPRAM HYDROBROMIDE
     Indication: DEPRESSION
  2. PROZAC [Concomitant]
     Active Substance: FLUOXETINE HYDROCHLORIDE
     Indication: DEPRESSION
  3. LEMTRADA [Suspect]
     Active Substance: ALEMTUZUMAB
     Indication: MULTIPLE SCLEROSIS
     Route: 041
     Dates: start: 20150413, end: 20150417

REACTIONS (15)
  - Pulmonary congestion [Unknown]
  - Fatigue [Not Recovered/Not Resolved]
  - Pain in extremity [Unknown]
  - Abasia [Recovered/Resolved]
  - Weight increased [Not Recovered/Not Resolved]
  - Contusion [Not Recovered/Not Resolved]
  - Infusion related reaction [Unknown]
  - Ill-defined disorder [Unknown]
  - Rosacea [Not Recovered/Not Resolved]
  - Sleep disorder [Unknown]
  - Herpes zoster [Recovered/Resolved]
  - Therapeutic response decreased [Unknown]
  - Autoimmune disorder [Unknown]
  - Neoplasm malignant [Unknown]
  - Muscle spasms [Unknown]

NARRATIVE: CASE EVENT DATE: 2015
